FAERS Safety Report 5900070-5 (Version None)
Quarter: 2008Q3

REPORT INFORMATION
  Report Type: 
  Country: None (occurrence: None)
  Receive Date: 20080926
  Receipt Date: 20080917
  Transmission Date: 20090109
  Serious: Yes (Hospitalization)
  Sender: FDA-Public Use
  Company Number: JP-JNJFOC-20080505448

PATIENT
  Sex: Female
  Weight: 61 kg

DRUGS (25)
  1. REMICADE [Suspect]
     Route: 042
  2. REMICADE [Suspect]
     Dosage: 17 INFUSIONS ON UNKNOWN DATES
     Route: 042
  3. REMICADE [Suspect]
     Route: 042
  4. REMICADE [Suspect]
     Route: 042
  5. REMICADE [Suspect]
     Route: 042
  6. REMICADE [Suspect]
     Indication: RHEUMATOID ARTHRITIS
     Route: 042
  7. RHEUMATREX [Suspect]
     Route: 048
  8. RHEUMATREX [Suspect]
     Route: 048
  9. RHEUMATREX [Suspect]
     Route: 048
  10. RHEUMATREX [Suspect]
     Route: 048
  11. RHEUMATREX [Suspect]
     Indication: RHEUMATOID ARTHRITIS
     Route: 048
  12. PREDONINE [Suspect]
     Route: 048
  13. PREDONINE [Suspect]
     Indication: RHEUMATOID ARTHRITIS
     Dosage: 5-20 MG
     Route: 048
  14. FOLIAMIN [Concomitant]
     Indication: PROPHYLAXIS
     Route: 048
  15. CYANOCOBALAMIN [Concomitant]
     Indication: HYPOAESTHESIA
     Route: 048
  16. LOXONIN [Concomitant]
     Indication: RHEUMATOID ARTHRITIS
     Route: 048
  17. CYTOTEC [Concomitant]
     Indication: PROPHYLAXIS
     Dosage: 600RG
     Route: 048
  18. AZULFIDINE [Concomitant]
     Route: 048
  19. LANSOPRAZOLE [Concomitant]
     Route: 048
  20. LAC B [Concomitant]
     Route: 048
  21. SELBEX [Concomitant]
     Route: 048
  22. MUCODYNE [Concomitant]
     Route: 048
  23. PREDNISOLONE [Concomitant]
     Indication: RHEUMATOID ARTHRITIS
     Route: 048
  24. MUCOSTA [Concomitant]
     Indication: GASTRITIS
     Route: 048
  25. LEUCOVORIN CALCIUM [Concomitant]
     Indication: PROPHYLAXIS
     Route: 048

REACTIONS (3)
  - CARBOHYDRATE ANTIGEN 19-9 INCREASED [None]
  - METASTASES TO LYMPH NODES [None]
  - OVARIAN CANCER RECURRENT [None]
